FAERS Safety Report 24986486 (Version 1)
Quarter: 2025Q1

REPORT INFORMATION
  Report Type: Spontaneous
  Country: AU (occurrence: AU)
  Receive Date: 20250219
  Receipt Date: 20250219
  Transmission Date: 20250408
  Serious: Yes (Other)
  Sender: CHEPLAPHARM
  Company Number: AU-ROCHE-1204018

PATIENT
  Age: 29 Year
  Sex: Female

DRUGS (11)
  1. CAPECITABINE [Suspect]
     Active Substance: CAPECITABINE
     Indication: HER2 positive breast cancer
  2. HERCEPTIN [Suspect]
     Active Substance: TRASTUZUMAB
     Indication: HER2 positive breast cancer
     Dates: start: 2008
  3. KADCYLA [Suspect]
     Active Substance: ADO-TRASTUZUMAB EMTANSINE
     Indication: Breast cancer
     Route: 042
  4. TYKERB [Suspect]
     Active Substance: LAPATINIB DITOSYLATE
     Indication: Product used for unknown indication
  5. TAXOL [Concomitant]
     Active Substance: PACLITAXEL
  6. TAMOXIFEN [Concomitant]
     Active Substance: TAMOXIFEN
  7. LETROZOLE [Concomitant]
     Active Substance: LETROZOLE
  8. ABRAXANE [Concomitant]
     Active Substance: PACLITAXEL
  9. ZOMETA [Concomitant]
     Active Substance: ZOLEDRONIC ACID
  10. LAPATINIB [Concomitant]
     Active Substance: LAPATINIB
     Dates: start: 201203
  11. TAXOTERE [Concomitant]
     Active Substance: DOCETAXEL

REACTIONS (22)
  - Disease progression [Unknown]
  - Metastasis [Unknown]
  - Metastases to skin [Unknown]
  - Metastases to chest wall [Unknown]
  - Metastases to bone [Unknown]
  - Metastases to liver [Unknown]
  - Metastases to central nervous system [Unknown]
  - Breast cancer [Unknown]
  - Alopecia [Unknown]
  - Metastases to spine [Unknown]
  - Fatigue [Unknown]
  - Dry eye [Unknown]
  - Dry mouth [Unknown]
  - Nasopharyngitis [Unknown]
  - Loss of consciousness [Unknown]
  - Nasal dryness [Unknown]
  - Ear dryness [Unknown]
  - Eye ulcer [Unknown]
  - Memory impairment [Unknown]
  - Dry skin [Unknown]
  - Pain in extremity [Unknown]
  - Fatigue [Unknown]

NARRATIVE: CASE EVENT DATE: 20090601
